FAERS Safety Report 12706007 (Version 1)
Quarter: 2016Q3

REPORT INFORMATION
  Report Type: Spontaneous
  Country: US (occurrence: None)
  Receive Date: 20160831
  Receipt Date: 20160831
  Transmission Date: 20161109
  Serious: No
  Sender: FDA-Public Use
  Company Number: UNT-2016-011485

PATIENT
  Age: 63 Year
  Sex: Female
  Weight: 74.4 kg

DRUGS (1)
  1. TYVASO [Suspect]
     Active Substance: TREPROSTINIL
     Indication: PULMONARY ARTERIAL HYPERTENSION
     Dosage: 18-54 MICROGRAMS, QID, INHALATION
     Route: 055
     Dates: start: 20150114

REACTIONS (3)
  - Device malfunction [None]
  - Dyspnoea [None]
  - Product taste abnormal [None]
